FAERS Safety Report 25341527 (Version 3)
Quarter: 2025Q2

REPORT INFORMATION
  Report Type: Spontaneous
  Country: CO (occurrence: CO)
  Receive Date: 20250521
  Receipt Date: 20250606
  Transmission Date: 20250717
  Serious: Yes (Other)
  Sender: BAYER HEALTHCARE PHARMACEUTICALS INC.
  Company Number: CO-BAYER-2025A058460

PATIENT
  Age: 66 Year
  Sex: Female
  Weight: 58 kg

DRUGS (1)
  1. ADEMPAS [Suspect]
     Active Substance: RIOCIGUAT
     Indication: Pulmonary arterial hypertension
     Dosage: 2.5 MG, Q8HR
     Route: 048
     Dates: start: 202402, end: 20250212

REACTIONS (5)
  - Blood pressure increased [Recovered/Resolved]
  - Dyspnoea exertional [Recovering/Resolving]
  - Fatigue [Recovering/Resolving]
  - Therapy interrupted [None]
  - Product availability issue [None]

NARRATIVE: CASE EVENT DATE: 20250401
